FAERS Safety Report 6282695-3 (Version None)
Quarter: 2009Q3

REPORT INFORMATION
  Report Type: 
  Country: None (occurrence: None)
  Receive Date: 20090724
  Receipt Date: 20090715
  Transmission Date: 20100115
  Serious: Yes (Hospitalization)
  Sender: FDA-Public Use
  Company Number: US-WATSON-2009-05492

PATIENT
  Sex: Female
  Weight: 70 kg

DRUGS (2)
  1. FERRLECIT [Suspect]
     Indication: IRON DEFICIENCY
     Dosage: 62.5 MG, 1/WEEK
     Route: 042
     Dates: start: 20090708, end: 20090708
  2. FERRLECIT [Suspect]
     Dosage: 25MG TEST DOSE
     Route: 042
     Dates: start: 20090708, end: 20090708

REACTIONS (4)
  - BLOOD POTASSIUM INCREASED [None]
  - DIALYSIS [None]
  - HEART RATE DECREASED [None]
  - PRURITUS [None]
